FAERS Safety Report 9498631 (Version 1)
Quarter: 2013Q3

REPORT INFORMATION
  Report Type: Spontaneous
  Country: US (occurrence: US)
  Receive Date: 20130904
  Receipt Date: 20130904
  Transmission Date: 20140515
  Serious: No
  Sender: FDA-Public Use
  Company Number: US-PFIZER INC-2013249687

PATIENT
  Age: 49 Year
  Sex: Male
  Weight: 93.88 kg

DRUGS (17)
  1. ALSUMA [Suspect]
     Indication: MIGRAINE
     Dosage: 6 MG, AS NEEDED (DAILY BUT NOT MORE THAN TWO TIMES A DAY)
     Dates: start: 20130828
  2. AMARYL [Concomitant]
     Indication: DIABETES MELLITUS
     Dosage: UNK
  3. JANUVIA [Concomitant]
     Indication: DIABETES MELLITUS
     Dosage: 100 MG, 1X/DAY
  4. METFORMIN [Concomitant]
     Indication: DIABETES MELLITUS
     Dosage: 500 MG, 3X/DAY
  5. GLIMEPIRIDE [Concomitant]
     Indication: DIABETES MELLITUS
     Dosage: 2 MG, 1X/DAY
  6. SEROQUEL [Concomitant]
     Indication: ANXIETY
     Dosage: 400 MG, 1X/DAY
  7. ABILIFY [Concomitant]
     Indication: ANXIETY
     Dosage: 30 MG, 1X/DAY
  8. XANAX [Concomitant]
     Indication: ANXIETY
     Dosage: 0.5 MG, 4X/DAY
  9. ROZEREM [Concomitant]
     Indication: INSOMNIA
     Dosage: 8 MG, 1X/DAY
  10. CRESTOR [Concomitant]
     Indication: BLOOD CHOLESTEROL INCREASED
     Dosage: 20 MG, UNK
  11. FENOFIBRATE [Concomitant]
     Indication: BLOOD TRIGLYCERIDES INCREASED
     Dosage: 160 MG, UNK
  12. PROTONIX [Concomitant]
     Indication: GASTROOESOPHAGEAL REFLUX DISEASE
     Dosage: 40 MG, 2X/DAY
  13. DICYCLOMINE [Concomitant]
     Indication: PROPHYLAXIS
     Dosage: 10 MG, 2X/DAY
  14. MAXZIDE [Concomitant]
     Indication: DIURETIC THERAPY
     Dosage: UNK (SPLITTING 37.5MG HYDROCHLOROTHIAZIDE/ 25MG TRIAMTERENE)
  15. VITAMIN D [Concomitant]
     Dosage: UNK, 5X/DAY
  16. TOPAMAX [Concomitant]
     Indication: MIGRAINE
     Dosage: 25 MG, 4X/DAY
  17. CLARITIN-D [Concomitant]
     Indication: SNEEZING
     Dosage: UNK, 1X/DAY

REACTIONS (2)
  - Incorrect dose administered [Unknown]
  - Injection site haemorrhage [Unknown]
